FAERS Safety Report 9401254 (Version 2)
Quarter: 2013Q3

REPORT INFORMATION
  Report Type: Spontaneous
  Country: AU (occurrence: AU)
  Receive Date: 20130715
  Receipt Date: 20130904
  Transmission Date: 20140515
  Serious: Yes (Disabling, Other)
  Sender: FDA-Public Use
  Company Number: AU-PFIZER INC-2013205226

PATIENT
  Age: 47 Year
  Sex: Female
  Weight: 72 kg

DRUGS (5)
  1. LYRICA [Suspect]
     Indication: POST HERPETIC NEURALGIA
     Dosage: 150 MG, 1X/DAY
     Route: 048
     Dates: start: 201104
  2. ENDONE [Concomitant]
     Indication: BACK PAIN
     Dosage: 5 MG, 1X/DAY
     Route: 048
  3. CODALGIN FORTE (CODEINE PHOSPHATE/PARACETAMOL) [Concomitant]
     Indication: BACK PAIN
     Dosage: 1-2 (30/500MG) AS NEEDED
     Route: 048
  4. IBUPROFEN [Concomitant]
  5. PROZAC [Concomitant]

REACTIONS (1)
  - Retinal detachment [Recovered/Resolved with Sequelae]
